FAERS Safety Report 7374365-5 (Version None)
Quarter: 2011Q1

REPORT INFORMATION
  Report Type: 
  Country: None (occurrence: None)
  Receive Date: 20110315
  Receipt Date: 20110227
  Transmission Date: 20110831
  Serious: Yes (Hospitalization)
  Sender: FDA-Public Use
  Company Number: 2011001035

PATIENT
  Age: 48 Year
  Sex: Male

DRUGS (3)
  1. TRAMADOL (TRAMADOL) [Concomitant]
  2. ERLOTINIB (ERLOTINIB) (TABLET) (ERLOTINIB) [Suspect]
     Indication: LUNG NEOPLASM MALIGNANT
     Dosage: 150 MG, QD, ORAL
     Route: 048
     Dates: start: 20101110
  3. MORPHINE [Concomitant]

REACTIONS (2)
  - SKIN INFECTION [None]
  - PAIN IN EXTREMITY [None]
